FAERS Safety Report 9701589 (Version 1)
Quarter: 2013Q4

REPORT INFORMATION
  Report Type: Spontaneous
  Country: US (occurrence: US)
  Receive Date: 20131119
  Receipt Date: 20131119
  Transmission Date: 20140711
  Serious: No
  Sender: FDA-Public Use
  Company Number: US-ORACLE-2011S1000081

PATIENT
  Age: 63 Year
  Sex: Female
  Weight: 70.76 kg

DRUGS (16)
  1. KRYSTEXXA INJECTION [Suspect]
     Indication: GOUT
     Route: 042
     Dates: start: 201106, end: 20110929
  2. PREDNISONE [Concomitant]
     Indication: GOUT
  3. TYLENOL /00020001/ [Concomitant]
     Indication: PREMEDICATION
     Route: 048
     Dates: start: 201106
  4. ZYRTEC [Concomitant]
     Indication: PREMEDICATION
     Route: 048
     Dates: start: 201106
  5. ESTRADIOL [Concomitant]
     Indication: HORMONE REPLACEMENT THERAPY
     Route: 048
  6. RANITIDINE [Concomitant]
     Indication: SCLERODERMA
     Route: 048
  7. OMEPRAZOLE [Concomitant]
     Indication: SCLERODERMA
     Route: 048
  8. LOSARTAN [Concomitant]
     Indication: RENAL DISORDER
     Route: 048
  9. LEVOTHYROXINE [Concomitant]
     Indication: THYROID DISORDER
     Route: 048
     Dates: start: 2000
  10. SIMVASTATIN [Concomitant]
     Indication: BLOOD CHOLESTEROL
     Route: 048
  11. VICODIN [Concomitant]
     Indication: PAIN
     Route: 048
     Dates: start: 1999
  12. BUPROPION [Concomitant]
     Indication: ANXIETY
     Route: 048
     Dates: start: 20111001
  13. PILOCARPINE [Concomitant]
     Indication: SJOGREN^S SYNDROME
     Route: 048
     Dates: start: 201106
  14. AMITRIPTYLINE [Concomitant]
     Indication: SLEEP DISORDER
     Route: 048
     Dates: start: 1999
  15. CYCLOBENZAPRINE [Concomitant]
     Indication: MUSCLE SPASMS
     Route: 048
  16. DIPHENOXYLATE/ATROPINE [Concomitant]
     Indication: DIARRHOEA
     Route: 048

REACTIONS (1)
  - Blood creatinine increased [Unknown]
